FAERS Safety Report 12051237 (Version 1)
Quarter: 2016Q1

REPORT INFORMATION
  Report Type: Spontaneous
  Country: GR (occurrence: GR)
  Receive Date: 20160209
  Receipt Date: 20160209
  Transmission Date: 20160526
  Serious: Yes (Other)
  Sender: FDA-Public Use
  Company Number: PHHY2016GR015870

PATIENT
  Age: 71 Year
  Sex: Male

DRUGS (1)
  1. ARZERRA [Suspect]
     Active Substance: OFATUMUMAB
     Indication: CHRONIC LYMPHOCYTIC LEUKAEMIA
     Route: 065

REACTIONS (2)
  - Gastric cancer [Unknown]
  - Second primary malignancy [Unknown]
